APPROVED DRUG PRODUCT: SEPTI-SOFT
Active Ingredient: HEXACHLOROPHENE
Strength: 0.25%
Dosage Form/Route: SOLUTION;TOPICAL
Application: N017460 | Product #001
Applicant: CALGON CORP DIV MERCK AND CO INC
Approved: Approved Prior to Jan 1, 1982 | RLD: No | RS: No | Type: DISCN